FAERS Safety Report 6184164-8 (Version None)
Quarter: 2009Q2

REPORT INFORMATION
  Report Type: 
  Country: None (occurrence: None)
  Receive Date: 20090506
  Receipt Date: 20090506
  Transmission Date: 20091009
  Serious: Yes (Hospitalization, Other)
  Sender: FDA-Public Use
  Company Number: None

PATIENT
  Age: 37 Year
  Sex: Female
  Weight: 55.3388 kg

DRUGS (2)
  1. CLONAZEPAM [Suspect]
     Indication: AUTONOMIC NERVOUS SYSTEM IMBALANCE
     Dosage: 1 TABLET ONCE DAILY PO
     Route: 048
     Dates: start: 20080209, end: 20090326
  2. CLONAZEPAM [Suspect]
     Indication: MITRAL VALVE PROLAPSE
     Dosage: 1 TABLET ONCE DAILY PO
     Route: 048
     Dates: start: 20080209, end: 20090326

REACTIONS (37)
  - ABDOMINAL PAIN UPPER [None]
  - ACTIVITIES OF DAILY LIVING IMPAIRED [None]
  - AGITATION [None]
  - AMNESIA [None]
  - ANOREXIA [None]
  - ANXIETY [None]
  - ASTHENIA [None]
  - BALANCE DISORDER [None]
  - CLONUS [None]
  - COGNITIVE DISORDER [None]
  - CONVULSION [None]
  - DEPERSONALISATION [None]
  - DIARRHOEA [None]
  - DYSPHORIA [None]
  - FALL [None]
  - FATIGUE [None]
  - HYPOAESTHESIA FACIAL [None]
  - IMPAIRED DRIVING ABILITY [None]
  - IMPAIRED SELF-CARE [None]
  - INSOMNIA [None]
  - LETHARGY [None]
  - LOSS OF CONSCIOUSNESS [None]
  - MAJOR DEPRESSION [None]
  - MEMORY IMPAIRMENT [None]
  - MIGRAINE [None]
  - MUSCLE SPASMS [None]
  - MUSCLE TWITCHING [None]
  - NAUSEA [None]
  - NEURALGIA [None]
  - PALPITATIONS [None]
  - PERSONALITY CHANGE [None]
  - SOCIAL AVOIDANT BEHAVIOUR [None]
  - TACHYPHRENIA [None]
  - THERAPEUTIC RESPONSE UNEXPECTED [None]
  - TREMOR [None]
  - VERTIGO [None]
  - VOMITING [None]
